FAERS Safety Report 17717746 (Version 1)
Quarter: 2020Q2

REPORT INFORMATION
  Report Type: Spontaneous
  Country: CH (occurrence: CH)
  Receive Date: 20200428
  Receipt Date: 20200428
  Transmission Date: 20200714
  Serious: Yes (Life-Threatening)
  Sender: FDA-Public Use
  Company Number: CH-JNJFOC-20200433801

PATIENT
  Age: 82 Year
  Sex: Female
  Weight: 68 kg

DRUGS (8)
  1. ASPIRIN CARDIO 100 MG [Concomitant]
     Active Substance: ASPIRIN
     Dosage: 100 MG
     Dates: end: 20200420
  2. RIVAROXABAN [Suspect]
     Active Substance: RIVAROXABAN
     Dosage: 10 MG
     Route: 048
  3. BELOC ZOK [Concomitant]
     Active Substance: METOPROLOL SUCCINATE
     Dosage: 25 MG, BID
  4. RIVAROXABAN [Suspect]
     Active Substance: RIVAROXABAN
     Indication: ANTICOAGULANT THERAPY
     Dosage: 20 MG
     Route: 048
     Dates: start: 201909
  5. CO-APROVEL [Concomitant]
     Active Substance: HYDROCHLOROTHIAZIDE\IRBESARTAN
     Dosage: 75 MG
  6. NORVASC [Concomitant]
     Active Substance: AMLODIPINE BESYLATE
     Dosage: 5 MG
  7. APROVEL [Concomitant]
     Active Substance: IRBESARTAN
     Dosage: 75 MG
  8. RIVAROXABAN [Suspect]
     Active Substance: RIVAROXABAN
     Dosage: 15 MG
     Route: 048

REACTIONS (1)
  - Visual field defect [Recovering/Resolving]

NARRATIVE: CASE EVENT DATE: 201909
